FAERS Safety Report 12130144 (Version 1)
Quarter: 2016Q1

REPORT INFORMATION
  Report Type: Other
  Country: US (occurrence: US)
  Receive Date: 20160229
  Receipt Date: 20160229
  Transmission Date: 20160526
  Serious: No
  Sender: FDA-Public Use
  Company Number: US-ACORDA-ACO_24714_2011

PATIENT
  Age: 66 Year
  Sex: Female
  Weight: 65.76 kg

DRUGS (11)
  1. LEVOTHYROXINE. [Concomitant]
     Active Substance: LEVOTHYROXINE
     Dosage: 0.025 MG, QD
     Dates: start: 2005
  2. VITAMIN B12 [Concomitant]
     Active Substance: CYANOCOBALAMIN
     Dosage: 500 ?G,Q AM
     Dates: start: 1996
  3. CALCIUM [Concomitant]
     Active Substance: CALCIUM
     Dosage: 600 MG, TID
     Dates: start: 1991
  4. SIMVASTATIN. [Concomitant]
     Active Substance: SIMVASTATIN
     Dosage: 40 MG Q NIGHT
     Dates: start: 2005
  5. AMPYRA [Suspect]
     Active Substance: DALFAMPRIDINE
     Indication: MULTIPLE SCLEROSIS
     Dosage: 10 MG, BID
     Route: 048
     Dates: start: 20110526, end: 2011
  6. VENLAFAXINE [Concomitant]
     Active Substance: VENLAFAXINE HYDROCHLORIDE
     Dosage: 75 MG, QD
     Dates: start: 2006
  7. BACLOFEN. [Concomitant]
     Active Substance: BACLOFEN
     Dosage: 10 MG, UNK
     Dates: start: 2005
  8. ASPIRIN. [Concomitant]
     Active Substance: ASPIRIN
     Dosage: UNK, QD
     Dates: start: 1991
  9. LIALDA [Concomitant]
     Active Substance: MESALAMINE
     Dosage: 1.2 G, BID
     Dates: start: 2009
  10. AMPYRA [Suspect]
     Active Substance: DALFAMPRIDINE
     Indication: GAIT DISTURBANCE
     Dosage: 10 MG, QD
     Route: 048
     Dates: start: 20110516, end: 20110525
  11. AMANTADINE [Concomitant]
     Active Substance: AMANTADINE
     Dosage: 100 MG, QD
     Dates: start: 2009

REACTIONS (5)
  - Paraesthesia [Recovered/Resolved]
  - Inappropriate schedule of drug administration [Recovered/Resolved]
  - Insomnia [Recovered/Resolved]
  - Hypothyroidism [Unknown]
  - Feeling of body temperature change [Unknown]

NARRATIVE: CASE EVENT DATE: 201105
